FAERS Safety Report 4929346-5 (Version None)
Quarter: 2006Q1

REPORT INFORMATION
  Report Type: 
  Country: None (occurrence: None)
  Receive Date: 20060224
  Receipt Date: 20060216
  Transmission Date: 20060701
  Serious: Yes (Hospitalization)
  Sender: FDA-Public Use
  Company Number: 2006024682

PATIENT

DRUGS (1)
  1. LYRICA [Suspect]
     Indication: ILL-DEFINED DISORDER

REACTIONS (2)
  - FEELING ABNORMAL [None]
  - MENTAL STATUS CHANGES [None]
